FAERS Safety Report 12420101 (Version 2)
Quarter: 2016Q2

REPORT INFORMATION
  Report Type: Spontaneous
  Country: US (occurrence: US)
  Receive Date: 20160531
  Receipt Date: 20160607
  Transmission Date: 20160815
  Serious: Yes (Hospitalization, Other)
  Sender: FDA-Public Use
  Company Number: US-009507513-1504USA013598

PATIENT
  Age: 68 Year
  Sex: Male

DRUGS (3)
  1. ZOCOR [Suspect]
     Active Substance: SIMVASTATIN
     Indication: PRODUCT USED FOR UNKNOWN INDICATION
     Dosage: 80 MG, DAILY
     Route: 065
  2. CUBICIN [Suspect]
     Active Substance: DAPTOMYCIN
     Indication: OFF LABEL USE
  3. CUBICIN [Suspect]
     Active Substance: DAPTOMYCIN
     Indication: ARTERIOVENOUS GRAFT SITE INFECTION
     Dosage: 4 MG/KG, Q48H
     Route: 065

REACTIONS (1)
  - Rhabdomyolysis [Not Recovered/Not Resolved]
